FAERS Safety Report 9737440 (Version 2)
Quarter: 2013Q4

REPORT INFORMATION
  Report Type: Report from Study
  Country: NL (occurrence: NL)
  Receive Date: 20131206
  Receipt Date: 20131206
  Transmission Date: 20140711
  Serious: Yes (Death)
  Sender: FDA-Public Use
  Company Number: NL-ABBVIE-12P-114-0918033-00

PATIENT
  Age: 67 Year
  Sex: Male
  Weight: 105 kg

DRUGS (13)
  1. LUCRIN DEPOT 11.25 MG [Suspect]
     Indication: PROSTATE CANCER
     Route: 058
     Dates: start: 20080125
  2. ATORVASTATIN [Concomitant]
     Indication: HYPERCHOLESTEROLAEMIA
     Route: 048
     Dates: start: 2006
  3. BICALUTAMIDE [Concomitant]
     Indication: PROSTATE CANCER
     Route: 048
     Dates: start: 2006
  4. ENALAPRIL [Concomitant]
     Indication: PRODUCT USED FOR UNKNOWN INDICATION
     Route: 048
     Dates: start: 2005
  5. FUROSEMIDE [Concomitant]
     Indication: DIURETIC THERAPY
     Route: 050
     Dates: start: 2006
  6. INSULINE ASPART PROTAMINE [Concomitant]
     Indication: DIABETES MELLITUS
     Dosage: IE VARIABLE/2 TIMES DAILY
     Route: 058
     Dates: start: 2006
  7. MACROGOL/SALTS POWDER FOR BEVERAGE [Concomitant]
     Indication: GASTROINTESTINAL DISORDER
     Route: 048
     Dates: start: 2006
  8. METFORMIN-PCH [Concomitant]
     Indication: DIABETES MELLITUS
     Dosage: 2/2 TIMES DAILY
     Route: 048
     Dates: start: 2009
  9. RIVASTIGMINE PLEISTER [Concomitant]
     Indication: MENTAL DISORDER
     Route: 062
     Dates: start: 2006
  10. PARACETAMOL [Concomitant]
     Indication: PAIN
     Dosage: 2/2 TIMES DAILY
     Route: 048
     Dates: start: 201203
  11. SALMETEROL/FLUTICASON [Concomitant]
     Indication: NASAL CONGESTION
     Dosage: 50/250MCG, 1/2 TIMES DAILY
     Route: 055
     Dates: start: 2006
  12. TRAMADOL [Concomitant]
     Indication: PAIN
     Route: 048
     Dates: start: 201110
  13. DUODOPA [Concomitant]
     Indication: PARKINSON^S DISEASE
     Dosage: PUMP:  INTESTINAL, 1/1 TIME DAILY
     Dates: start: 201202

REACTIONS (3)
  - Death [Fatal]
  - Hot flush [Fatal]
  - Libido decreased [Fatal]
